FAERS Safety Report 7270200-4 (Version None)
Quarter: 2011Q1

REPORT INFORMATION
  Report Type: 
  Country: None (occurrence: None)
  Receive Date: 20110125
  Receipt Date: 20110125
  Transmission Date: 20110831
  Serious: Yes (Hospitalization, Other)
  Sender: FDA-Public Use
  Company Number: None

PATIENT
  Age: 55 Year
  Sex: Female
  Weight: 69.4003 kg

DRUGS (7)
  1. GEODON [Concomitant]
  2. CYMBALTA [Suspect]
     Indication: ANXIETY DISORDER
     Dosage: 60 MG ONCE A DAY PO
     Route: 048
     Dates: start: 20080310, end: 20081228
  3. CYMBALTA [Suspect]
     Indication: DEPRESSION
     Dosage: 60 MG ONCE A DAY PO
     Route: 048
     Dates: start: 20080310, end: 20081228
  4. VALIUM [Concomitant]
  5. PSYCHOTHERAPY [Concomitant]
  6. WELLBUTRIN SR [Concomitant]
  7. EFFEXOR [Concomitant]

REACTIONS (6)
  - SUICIDAL BEHAVIOUR [None]
  - PAIN IN EXTREMITY [None]
  - BEDRIDDEN [None]
  - ANXIETY [None]
  - THINKING ABNORMAL [None]
  - WITHDRAWAL SYNDROME [None]
